FAERS Safety Report 8981885 (Version 1)
Quarter: 2012Q4

REPORT INFORMATION
  Report Type: 
  Country: US (occurrence: US)
  Receive Date: 20121212
  Receipt Date: 20121212
  Transmission Date: 20130627
  Serious: Yes (Hospitalization)
  Sender: FDA-Public Use
  Company Number: US-ASTELLAS-412732

PATIENT
  Age: 87 Year
  Sex: Male

DRUGS (7)
  1. TARCEVA [Suspect]
     Indication: RENAL CELL CARCINOMA
     Route: 048
     Dates: start: 20050209, end: 20050605
  2. TARCEVA [Suspect]
     Indication: MALIGNANT RESPIRATORY TRACT NEOPLASM
  3. AVASTIN [Suspect]
     Indication: METASTASES TO LUNG
     Route: 065
     Dates: start: 20050209, end: 20050605
  4. NORVASC [Concomitant]
  5. TAMSULOSIN [Concomitant]
  6. DRONABINOL [Concomitant]
  7. PAIN KILLER (UNK INGREDIENTS) [Concomitant]

REACTIONS (2)
  - Haemoptysis [Recovered/Resolved]
  - Rash [Unknown]
